FAERS Safety Report 10907271 (Version 1)
Quarter: 2015Q1

REPORT INFORMATION
  Report Type: Spontaneous
  Country: US (occurrence: None)
  Receive Date: 20150309
  Receipt Date: 20150309
  Transmission Date: 20150721
  Serious: Yes (Hospitalization)
  Sender: FDA-Public Use
  Company Number: 2766768

PATIENT
  Age: 19 Year
  Sex: Female

DRUGS (1)
  1. KETOROLAC TROMETHAMINE INJECTION, USP (KETOROLAC TROMETAMOL) [Suspect]
     Active Substance: KETOROLAC TROMETHAMINE
     Indication: MIGRAINE
     Dates: start: 201412

REACTIONS (10)
  - Hyperacusis [None]
  - Back pain [None]
  - Photophobia [None]
  - Dizziness [None]
  - Diarrhoea [None]
  - Vomiting [None]
  - Product container seal issue [None]
  - White blood cell count increased [None]
  - Malaise [None]
  - Heart rate increased [None]

NARRATIVE: CASE EVENT DATE: 201501
